FAERS Safety Report 5211784-7 (Version None)
Quarter: 2007Q1

REPORT INFORMATION
  Report Type: 
  Country: None (occurrence: None)
  Receive Date: 20070118
  Receipt Date: 20070111
  Transmission Date: 20070707
  Serious: Yes (Disabling)
  Sender: FDA-Public Use
  Company Number: US-AVENTIS-200710315US

PATIENT
  Sex: Male

DRUGS (5)
  1. ALLEGRA [Suspect]
     Indication: RHINITIS ALLERGIC
     Route: 048
     Dates: start: 20061116, end: 20061201
  2. ADVAIR DISKUS 100/50 [Suspect]
     Indication: ASTHMA
     Dosage: DOSE: 1 PUFF
     Route: 055
     Dates: start: 20061116, end: 20061201
  3. VENTOLIN HFA [Concomitant]
     Dosage: DOSE: UNK
  4. SINGULAIR [Concomitant]
     Dosage: DOSE: UNK
  5. NASONEX [Concomitant]
     Dosage: DOSE: UNK

REACTIONS (5)
  - ANGIOEDEMA [None]
  - CHEST DISCOMFORT [None]
  - PAIN [None]
  - PAIN IN EXTREMITY [None]
  - SCROTAL PAIN [None]
